FAERS Safety Report 15352067 (Version 1)
Quarter: 2018Q3

REPORT INFORMATION
  Report Type: Report from Study
  Country: US (occurrence: US)
  Receive Date: 20180905
  Receipt Date: 20180905
  Transmission Date: 20181010
  Serious: Yes (Other)
  Sender: FDA-Public Use
  Company Number: US-PFIZER INC-2018225458

PATIENT
  Age: 48 Year
  Sex: Female

DRUGS (3)
  1. SUTENT [Suspect]
     Active Substance: SUNITINIB MALATE
     Indication: PANCREATIC NEUROENDOCRINE TUMOUR
     Dosage: 37.5 MG, DAILY
     Route: 048
     Dates: start: 20180521, end: 2018
  2. SUTENT [Suspect]
     Active Substance: SUNITINIB MALATE
     Dosage: 37.5 MG, DAILY
     Dates: start: 20180603, end: 201806
  3. SANDOSTATIN [Concomitant]
     Active Substance: OCTREOTIDE ACETATE
     Indication: NEUROENDOCRINE TUMOUR
     Dosage: 30 MG, UNK (EVERY 4 WEEKS)
     Dates: start: 20170303

REACTIONS (11)
  - Syncope [Not Recovered/Not Resolved]
  - Animal scratch [Unknown]
  - Drug dose omission [Unknown]
  - Lip swelling [Recovering/Resolving]
  - Asthenia [Not Recovered/Not Resolved]
  - Swelling face [Recovered/Resolved]
  - Stomatitis [Recovering/Resolving]
  - Diarrhoea [Recovered/Resolved]
  - Mucosal inflammation [Not Recovered/Not Resolved]
  - Fatigue [Not Recovered/Not Resolved]
  - Rash macular [Recovering/Resolving]

NARRATIVE: CASE EVENT DATE: 2018
